FAERS Safety Report 9593028 (Version 2)
Quarter: 2014Q1

REPORT INFORMATION
  Report Type: Report from Study
  Country: JP (occurrence: JP)
  Receive Date: 20131004
  Receipt Date: 20140303
  Transmission Date: 20141002
  Serious: Yes (Hospitalization)
  Sender: FDA-Public Use
  Company Number: JP-UCBSA-099183

PATIENT
  Age: 64 Year
  Sex: Female
  Weight: 45.6 kg

DRUGS (10)
  1. CIMZIA [Suspect]
     Indication: RHEUMATOID ARTHRITIS
     Route: 058
     Dates: start: 20130722, end: 20130722
  2. CIMZIA [Suspect]
     Indication: RHEUMATOID ARTHRITIS
     Route: 058
     Dates: start: 20130617, end: 20130701
  3. RHEUMATREX [Suspect]
     Indication: RHEUMATOID ARTHRITIS
     Route: 048
  4. CELECOX [Concomitant]
     Dosage: DAILY DOSE: 200 MG
     Route: 048
     Dates: end: 20130721
  5. CELECOX [Concomitant]
     Dosage: DAILY DOSE: 100 MG
     Route: 048
     Dates: start: 20130722, end: 20130804
  6. CELECOX [Concomitant]
     Dosage: DAILY DOSE: 200 MG
     Route: 048
     Dates: start: 20130805, end: 20130901
  7. FOLIAMIN [Concomitant]
     Route: 048
  8. PREDNISOLONE [Concomitant]
     Dosage: DAILY DOSE: 1 MG
     Route: 048
     Dates: end: 20130722
  9. PREDNISOLONE [Concomitant]
     Dosage: DAILY DOSE: 1 MG
     Route: 048
     Dates: start: 20130819
  10. ISALON [Concomitant]
     Dosage: DAILY DOSE: 100 MG
     Route: 048
     Dates: end: 20130904

REACTIONS (1)
  - Dermatitis psoriasiform [Recovering/Resolving]
